FAERS Safety Report 20379820 (Version 1)
Quarter: 2022Q1

REPORT INFORMATION
  Report Type: Spontaneous
  Country: US (occurrence: US)
  Receive Date: 20220126
  Receipt Date: 20220126
  Transmission Date: 20220423
  Serious: Yes (Other)
  Sender: FDA-Public Use
  Company Number: US-BAYER-2022A012628

PATIENT
  Age: 69 Year
  Sex: Female

DRUGS (3)
  1. ASPIRIN [Suspect]
     Active Substance: ASPIRIN
     Dosage: 81 MG, QD
  2. WARFARIN [Concomitant]
     Active Substance: WARFARIN
  3. OCTREOTIDE [Concomitant]
     Active Substance: OCTREOTIDE
     Dosage: 200 MG, BID

REACTIONS (2)
  - Haematochezia [None]
  - Anaemia [None]
